FAERS Safety Report 11519605 (Version 1)
Quarter: 2015Q3

REPORT INFORMATION
  Report Type: Spontaneous
  Country: US (occurrence: US)
  Receive Date: 20150918
  Receipt Date: 20150918
  Transmission Date: 20151125
  Serious: No
  Sender: FDA-Public Use
  Company Number: US-ASTRAZENECA-2015SE87167

PATIENT
  Sex: Male

DRUGS (3)
  1. LEVEMIR [Concomitant]
     Active Substance: INSULIN DETEMIR
  2. BYDUREON [Suspect]
     Active Substance: EXENATIDE
     Route: 065
  3. VICTOZA [Concomitant]
     Active Substance: LIRAGLUTIDE

REACTIONS (4)
  - Underdose [Unknown]
  - General physical health deterioration [Unknown]
  - Product quality issue [Unknown]
  - Intentional product misuse [Unknown]
